FAERS Safety Report 12744123 (Version 2)
Quarter: 2016Q3

REPORT INFORMATION
  Report Type: Spontaneous
  Country: IE (occurrence: IE)
  Receive Date: 20160914
  Receipt Date: 20160917
  Transmission Date: 20161109
  Serious: Yes (Other)
  Sender: FDA-Public Use
  Company Number: PHFR2016IE007363

PATIENT
  Sex: Male

DRUGS (1)
  1. SEEBRI BREEZHALER [Suspect]
     Active Substance: GLYCOPYRROLATE
     Indication: CHRONIC OBSTRUCTIVE PULMONARY DISEASE
     Dosage: 1 DF, QD
     Route: 055

REACTIONS (3)
  - Malaise [Recovered/Resolved]
  - Gastrointestinal disorder [Recovered/Resolved]
  - Nausea [Recovered/Resolved]
